FAERS Safety Report 8459106-2 (Version None)
Quarter: 2012Q2

REPORT INFORMATION
  Report Type: 
  Country: None (occurrence: None)
  Receive Date: 20120622
  Receipt Date: 20120621
  Transmission Date: 20120825
  Serious: Yes (Other)
  Sender: FDA-Public Use
  Company Number: US-PFIZER INC-2012150273

PATIENT
  Sex: Female
  Weight: 49.887 kg

DRUGS (1)
  1. ADVIL PM [Suspect]
     Indication: SLEEP DISORDER
     Dosage: 200/38 MG, 1X/DAY
     Route: 048
     Dates: start: 20120617

REACTIONS (2)
  - CHOKING [None]
  - THROAT IRRITATION [None]
